FAERS Safety Report 25416739 (Version 2)
Quarter: 2025Q2

REPORT INFORMATION
  Report Type: Report from Study
  Country: US (occurrence: US)
  Receive Date: 20250610
  Receipt Date: 20250618
  Transmission Date: 20250716
  Serious: Yes (Hospitalization, Other)
  Sender: JAZZ
  Company Number: US-JAZZ PHARMACEUTICALS-2025-US-011017

PATIENT
  Age: 30 Year
  Sex: Female

DRUGS (10)
  1. XYWAV [Suspect]
     Active Substance: CALCIUM OXYBATE\MAGNESIUM OXYBATE\POTASSIUM OXYBATE\SODIUM OXYBATE
     Indication: Hypersomnia
  2. ALCLOMETASONE DIPROPIONATE [Concomitant]
     Active Substance: ALCLOMETASONE DIPROPIONATE
     Dates: start: 20240619
  3. CLINDAMYCIN PHOSPHATE [Concomitant]
     Active Substance: CLINDAMYCIN PHOSPHATE
     Dates: start: 20241016
  4. EPIPEN [Concomitant]
     Active Substance: EPINEPHRINE
     Dates: start: 20200805
  5. IBUPROFEN [Concomitant]
     Active Substance: IBUPROFEN
     Dates: start: 20230830
  6. MODAFINIL [Concomitant]
     Active Substance: MODAFINIL
     Dates: start: 20221216
  7. TRETINOIN [Concomitant]
     Active Substance: TRETINOIN
     Dates: start: 20220602
  8. TRETINOIN [Concomitant]
     Active Substance: TRETINOIN
     Dates: start: 20240807
  9. ARTIFICIAL TEARS [CARMELLOSE SODIUM] [Concomitant]
     Dates: start: 20241107
  10. FOLIC ACID\IRON\MINERALS\VITAMINS [Concomitant]
     Active Substance: FOLIC ACID\IRON\MINERALS\VITAMINS
     Indication: Product used for unknown indication
     Dates: start: 20250401

REACTIONS (8)
  - Sepsis [Unknown]
  - Abortion spontaneous [Unknown]
  - Oropharyngeal pain [Unknown]
  - Tachycardia [Unknown]
  - Pyrexia [Unknown]
  - Asthenia [Not Recovered/Not Resolved]
  - Pain [Not Recovered/Not Resolved]
  - Exposure during pregnancy [Unknown]

NARRATIVE: CASE EVENT DATE: 20250611
